FAERS Safety Report 10506697 (Version 2)
Quarter: 2016Q3

REPORT INFORMATION
  Report Type: Report from Study
  Country: US (occurrence: US)
  Receive Date: 20141009
  Receipt Date: 20160923
  Transmission Date: 20161109
  Serious: No
  Sender: FDA-Public Use
  Company Number: US-AMGEN-USASL2014075999

PATIENT
  Age: 61 Year
  Sex: Female

DRUGS (2)
  1. ENBREL [Suspect]
     Active Substance: ETANERCEPT
     Indication: PSORIASIS
     Dosage: 50 MG, WEEKLY
     Route: 065
     Dates: start: 20140502
  2. ENBREL [Suspect]
     Active Substance: ETANERCEPT
     Indication: PSORIATIC ARTHROPATHY
     Dosage: UNK UNK, UNK
     Route: 065

REACTIONS (9)
  - Sneezing [Unknown]
  - Injury associated with device [Unknown]
  - Laceration [Unknown]
  - Pain in extremity [Recovered/Resolved]
  - Psoriasis [Not Recovered/Not Resolved]
  - Skin haemorrhage [Recovered/Resolved]
  - Injection site haemorrhage [Unknown]
  - Animal scratch [Recovered/Resolved]
  - Insomnia [Unknown]

NARRATIVE: CASE EVENT DATE: 20140929
